FAERS Safety Report 5208204-5 (Version None)
Quarter: 2007Q1

REPORT INFORMATION
  Report Type: 
  Country: None (occurrence: None)
  Receive Date: 20070115
  Receipt Date: 20070110
  Transmission Date: 20070707
  Serious: Yes (Other)
  Sender: FDA-Public Use
  Company Number: GB-GLAXOSMITHKLINE-B0453585A

PATIENT
  Sex: Female

DRUGS (2)
  1. LAMICTAL [Suspect]
     Indication: EPILEPSY
     Route: 048
     Dates: start: 20050101
  2. NO CONCURRENT MEDICATION [Concomitant]

REACTIONS (4)
  - CONVULSION [None]
  - VAGINAL INFLAMMATION [None]
  - VAGINAL PAIN [None]
  - VAGINAL SWELLING [None]
